FAERS Safety Report 13401870 (Version 1)
Quarter: 2017Q2

REPORT INFORMATION
  Report Type: Report from Study
  Country: IN (occurrence: IN)
  Receive Date: 20170404
  Receipt Date: 20170404
  Transmission Date: 20170830
  Serious: Yes (Death, Hospitalization)
  Sender: FDA-Public Use
  Company Number: IN-INCYTE CORPORATION-2016IN004417

PATIENT
  Age: 65 Year
  Sex: Male
  Weight: 70 kg

DRUGS (2)
  1. JAKAVI [Suspect]
     Active Substance: RUXOLITINIB
     Indication: MYELOFIBROSIS
     Dosage: 15 MG, BID
     Route: 048
     Dates: start: 20160523, end: 20160912
  2. JAKAVI [Suspect]
     Active Substance: RUXOLITINIB
     Dosage: 20 MG, BID
     Route: 048
     Dates: start: 20160912

REACTIONS (4)
  - Wound [Not Recovered/Not Resolved]
  - Anaemia [Not Recovered/Not Resolved]
  - Restlessness [Fatal]
  - Asthenia [Fatal]

NARRATIVE: CASE EVENT DATE: 201606
